FAERS Safety Report 26079811 (Version 2)
Quarter: 2025Q4

REPORT INFORMATION
  Report Type: Spontaneous
  Country: US (occurrence: US)
  Receive Date: 20251123
  Receipt Date: 20251212
  Transmission Date: 20260117
  Serious: No
  Sender: ABBVIE
  Company Number: US-ABBVIE-6553411

PATIENT
  Age: 67 Year
  Sex: Female
  Weight: 84 kg

DRUGS (2)
  1. DURYSTA [Suspect]
     Active Substance: BIMATOPROST
     Indication: Glaucoma
     Route: 050
     Dates: start: 2025
  2. DURYSTA [Suspect]
     Active Substance: BIMATOPROST
     Indication: Intraocular pressure test

REACTIONS (1)
  - Iritis [Recovering/Resolving]

NARRATIVE: CASE EVENT DATE: 20251101
